FAERS Safety Report 9027064 (Version 2)
Quarter: 2013Q1

REPORT INFORMATION
  Report Type: Spontaneous
  Country: US (occurrence: US)
  Receive Date: 20130123
  Receipt Date: 20130315
  Transmission Date: 20140127
  Serious: Yes (Death, Other)
  Sender: FDA-Public Use
  Company Number: US-TEVA-381191USA

PATIENT
  Sex: Female

DRUGS (2)
  1. CLARAVIS [Suspect]
     Indication: ACNE
     Dates: start: 20120702, end: 20120716
  2. ORAL CONTRACEPTIVE NOS [Concomitant]

REACTIONS (6)
  - Pulmonary embolism [Fatal]
  - Acne [Recovering/Resolving]
  - Stress [Unknown]
  - Chapped lips [Unknown]
  - Lip dry [Unknown]
  - Dry skin [Unknown]
